FAERS Safety Report 13998218 (Version 1)
Quarter: 2017Q3

REPORT INFORMATION
  Report Type: Spontaneous
  Country: US (occurrence: None)
  Receive Date: 20170921
  Receipt Date: 20170921
  Transmission Date: 20171128
  Serious: Yes (Hospitalization)
  Sender: FDA-Public Use
  Company Number: None

PATIENT
  Age: 51 Year
  Sex: Female
  Weight: 53.2 kg

DRUGS (1)
  1. CAPECITABINE. [Suspect]
     Active Substance: CAPECITABINE
     Indication: COLON CANCER
     Dosage: 1500MG BIDX14D X 7D OFF  BY MOUTH
     Route: 048
     Dates: start: 20170313

REACTIONS (2)
  - Colostomy [None]
  - Constipation [None]

NARRATIVE: CASE EVENT DATE: 20170504
